FAERS Safety Report 6161586-2 (Version None)
Quarter: 2009Q2

REPORT INFORMATION
  Report Type: 
  Country: None (occurrence: None)
  Receive Date: 20090421
  Receipt Date: 20090417
  Transmission Date: 20091009
  Serious: Yes (Hospitalization)
  Sender: FDA-Public Use
  Company Number: US-ASTRAZENECA-2009UW09682

PATIENT
  Sex: Male

DRUGS (5)
  1. CRESTOR [Suspect]
     Route: 048
  2. NORVASC [Concomitant]
     Indication: HYPERTENSION
  3. PLAVIX [Concomitant]
     Indication: ANTICOAGULANT THERAPY
  4. XANAX [Concomitant]
     Indication: ANXIOLYTIC THERAPY
  5. FEXOFENADINE [Concomitant]
     Indication: MULTIPLE ALLERGIES

REACTIONS (5)
  - ANOREXIA [None]
  - FLUSHING [None]
  - INSOMNIA [None]
  - NAUSEA [None]
  - TRANSIENT ISCHAEMIC ATTACK [None]
